FAERS Safety Report 6716923-4 (Version None)
Quarter: 2010Q2

REPORT INFORMATION
  Report Type: 
  Country: None (occurrence: None)
  Receive Date: 20100510
  Receipt Date: 20100503
  Transmission Date: 20101027
  Serious: Yes (Hospitalization)
  Sender: FDA-Public Use
  Company Number: US-CEPHALON-US025027

PATIENT
  Sex: Male
  Weight: 68 kg

DRUGS (18)
  1. FENTORA [Suspect]
     Indication: CANCER PAIN
     Route: 002
     Dates: start: 20080903, end: 20081004
  2. FENTORA [Suspect]
     Route: 002
     Dates: start: 20081004, end: 20081013
  3. FENTORA [Suspect]
     Route: 002
     Dates: start: 20081016
  4. FENTORA [Suspect]
     Route: 048
     Dates: start: 20080903
  5. ERLOTINIB HYDROCHLORIDE [Concomitant]
     Indication: NON-SMALL CELL LUNG CANCER
     Route: 048
     Dates: start: 20080519, end: 20081130
  6. BLINDED INVESTIGATIONAL PRODUCT [Concomitant]
     Indication: NON-SMALL CELL LUNG CANCER
     Route: 048
     Dates: start: 20080519, end: 20081130
  7. COMPAZINE [Concomitant]
     Route: 048
     Dates: start: 20070913
  8. SENOKOT [Concomitant]
     Route: 048
     Dates: start: 20070913
  9. SODIUM PHOSPHATES [Concomitant]
     Route: 054
     Dates: start: 20071101
  10. GABAPENTIN [Concomitant]
     Route: 048
     Dates: start: 20080519
  11. OMEPRAZOLE [Concomitant]
     Route: 048
     Dates: start: 20080616
  12. OXYCONTIN [Concomitant]
     Route: 048
     Dates: start: 20070913
  13. PERCOCET [Concomitant]
     Route: 048
     Dates: start: 20070913
  14. METHADONE HCL [Concomitant]
     Route: 048
     Dates: start: 20080801
  15. XANAX [Concomitant]
     Route: 048
     Dates: start: 20080520
  16. REMERON [Concomitant]
     Route: 048
     Dates: start: 20080801
  17. MARINOL [Concomitant]
     Route: 048
     Dates: start: 20081006
  18. SUNITINIB MALATE [Concomitant]
     Dates: start: 20080519, end: 20081130

REACTIONS (4)
  - ABDOMINAL PAIN [None]
  - DRUG PRESCRIBING ERROR [None]
  - NAUSEA [None]
  - VOMITING [None]
